FAERS Safety Report 5996741-5 (Version None)
Quarter: 2008Q4

REPORT INFORMATION
  Report Type: 
  Country: None (occurrence: None)
  Receive Date: 20081212
  Receipt Date: 20081023
  Transmission Date: 20090506
  Serious: No
  Sender: FDA-Public Use
  Company Number: US-ABBOTT-08P-163-0483555-00

PATIENT
  Sex: Female

DRUGS (6)
  1. HUMIRA [Suspect]
     Indication: PSORIASIS
     Dosage: LOADING
     Dates: start: 20080728, end: 20080728
  2. HUMIRA [Suspect]
     Dates: start: 20080805, end: 20081022
  3. TALCONEX [Concomitant]
     Indication: PSORIASIS
     Route: 061
  4. HYDROCHLOROTHIAZIDE [Concomitant]
     Indication: HYPERTENSION
     Route: 048
  5. ALLOPURINOL [Concomitant]
     Indication: GOUT
     Route: 048
  6. CLEANSER [Concomitant]
     Indication: PSORIASIS
     Route: 061

REACTIONS (2)
  - DRUG INEFFECTIVE [None]
  - PSORIASIS [None]
